FAERS Safety Report 15636349 (Version 2)
Quarter: 2018Q4

REPORT INFORMATION
  Report Type: Spontaneous
  Country: US (occurrence: US)
  Receive Date: 20181120
  Receipt Date: 20181123
  Transmission Date: 20190205
  Serious: Yes (Other)
  Sender: FDA-Public Use
  Company Number: US-AMGEN-USASP2018163920

PATIENT

DRUGS (5)
  1. MTX [Suspect]
     Active Substance: METHOTREXATE SODIUM
     Indication: PRODUCT USED FOR UNKNOWN INDICATION
     Dosage: UNK
     Route: 065
  2. PLAQUENIL [Concomitant]
     Active Substance: HYDROXYCHLOROQUINE SULFATE
     Dosage: UNK
     Dates: start: 2016
  3. ORTHOVISC [Concomitant]
     Active Substance: HYALURONIC ACID
  4. SULFASALAZINE. [Concomitant]
     Active Substance: SULFASALAZINE
     Dosage: UNK
  5. ENBREL [Suspect]
     Active Substance: ETANERCEPT
     Indication: JUVENILE IDIOPATHIC ARTHRITIS
     Dosage: UNK
     Route: 065

REACTIONS (13)
  - Major depression [Unknown]
  - Arthritis [Unknown]
  - Gingival disorder [Unknown]
  - Lipohypertrophy [Unknown]
  - Acne [Unknown]
  - Alopecia [Unknown]
  - Malaise [Unknown]
  - Fungal infection [Unknown]
  - Mood swings [Unknown]
  - Drug ineffective [Unknown]
  - Weight fluctuation [Unknown]
  - Anxiety [Unknown]
  - Cushingoid [Unknown]

NARRATIVE: CASE EVENT DATE: 2008
